FAERS Safety Report 4617866-2 (Version None)
Quarter: 2005Q1

REPORT INFORMATION
  Report Type: 
  Country: None (occurrence: None)
  Receive Date: 20050324
  Receipt Date: 20050226
  Transmission Date: 20050727
  Serious: Yes (Disabling)
  Sender: FDA-Public Use
  Company Number: DE-GLAXOSMITHKLINE-D0046000A

PATIENT
  Age: 38 Year
  Sex: Female
  Weight: 53 kg

DRUGS (1)
  1. IMIGRAN [Suspect]
     Indication: MIGRAINE WITHOUT AURA
     Dosage: 6MG SEE DOSAGE TEXT
     Route: 058
     Dates: start: 19970101

REACTIONS (1)
  - DIABETES MELLITUS INSULIN-DEPENDENT [None]
